FAERS Safety Report 5938025-7 (Version None)
Quarter: 2008Q4

REPORT INFORMATION
  Report Type: 
  Country: None (occurrence: None)
  Receive Date: 20081031
  Receipt Date: 20081024
  Transmission Date: 20090506
  Serious: Yes (Death, Other)
  Sender: FDA-Public Use
  Company Number: DK-ABBOTT-08P-044-0462641-00

PATIENT
  Sex: Male
  Weight: 105 kg

DRUGS (2)
  1. ZEMPLAR [Suspect]
     Indication: SECONDARY HYPERTHYROIDISM
     Dosage: AVERAGE 10 MCG A WEEK; DURING DIALYSIS
     Route: 042
     Dates: start: 20070524
  2. RENAGEL [Concomitant]
     Indication: DRUG USE FOR UNKNOWN INDICATION

REACTIONS (4)
  - CEREBRAL HAEMORRHAGE [None]
  - DIARRHOEA [None]
  - SEPSIS [None]
  - SKIN ULCER [None]
